FAERS Safety Report 8313935-4 (Version None)
Quarter: 2012Q2

REPORT INFORMATION
  Report Type: 
  Country: None (occurrence: None)
  Receive Date: 20120426
  Receipt Date: 20120426
  Transmission Date: 20120825
  Serious: No
  Sender: FDA-Public Use
  Company Number: None

PATIENT
  Age: 64 Year
  Sex: Female
  Weight: 80.285 kg

DRUGS (2)
  1. CYMBALTA [Suspect]
     Indication: DEPRESSION
     Dosage: 60.0 MG
  2. CYMBALTA [Concomitant]

REACTIONS (9)
  - PRODUCT SUBSTITUTION ISSUE [None]
  - DIARRHOEA [None]
  - DEHYDRATION [None]
  - BODY TEMPERATURE DECREASED [None]
  - DIZZINESS [None]
  - BLOOD PRESSURE INCREASED [None]
  - PRODUCT QUALITY ISSUE [None]
  - HYPERHIDROSIS [None]
  - STARVATION [None]
